FAERS Safety Report 10453388 (Version 1)
Quarter: 2014Q3

REPORT INFORMATION
  Report Type: Spontaneous
  Country: FR (occurrence: FR)
  Receive Date: 20140915
  Receipt Date: 20140915
  Transmission Date: 20150326
  Serious: Yes (Hospitalization)
  Sender: FDA-Public Use
  Company Number: PHHY2014FR115046

PATIENT
  Age: 47 Year
  Sex: Female

DRUGS (3)
  1. TETRAZEPAM [Suspect]
     Active Substance: TETRAZEPAM
     Indication: INFLUENZA LIKE ILLNESS
  2. PARACETAMOL [Concomitant]
     Active Substance: ACETAMINOPHEN
     Indication: INFLUENZA LIKE ILLNESS
  3. IBUPROFEN. [Suspect]
     Active Substance: IBUPROFEN
     Indication: INFLUENZA LIKE ILLNESS

REACTIONS (25)
  - Cholestasis [Unknown]
  - Respiratory distress [Unknown]
  - Hypokinesia [Unknown]
  - Chest pain [Unknown]
  - Hypoxia [Unknown]
  - Xeroderma [Unknown]
  - Hepatocellular injury [Unknown]
  - Cardiogenic shock [Unknown]
  - Dyspnoea [Unknown]
  - Akinesia [Unknown]
  - Haemodynamic instability [Unknown]
  - Erythema [Unknown]
  - Blister [Unknown]
  - Encephalitis [Unknown]
  - Renal failure [Unknown]
  - Hallucination, auditory [Unknown]
  - Acute generalised exanthematous pustulosis [Unknown]
  - Skin erosion [Unknown]
  - Neutrophilia [Unknown]
  - Face oedema [Unknown]
  - Skin hypopigmentation [Unknown]
  - Skin hyperpigmentation [Unknown]
  - Myocarditis [Unknown]
  - Rash pustular [Unknown]
  - Hypertrophic scar [Unknown]
